FAERS Safety Report 12315219 (Version 1)
Quarter: 2016Q2

REPORT INFORMATION
  Report Type: Spontaneous
  Country: US (occurrence: US)
  Receive Date: 20160428
  Receipt Date: 20160428
  Transmission Date: 20160815
  Serious: Yes (Hospitalization, Other)
  Sender: FDA-Public Use
  Company Number: US-PFIZER INC-2016045295

PATIENT
  Age: 77 Year
  Sex: Male
  Weight: 108 kg

DRUGS (6)
  1. LYRICA [Suspect]
     Active Substance: PREGABALIN
     Indication: OSTEOARTHRITIS
     Dosage: 50 MG, 2X/DAY
     Route: 048
  2. LYRICA [Suspect]
     Active Substance: PREGABALIN
     Indication: RHEUMATOID ARTHRITIS
     Dosage: 100MG  AT NIGHT AND 50MG DURING THE DAY
     Route: 048
  3. LYRICA [Suspect]
     Active Substance: PREGABALIN
     Indication: POLYMYALGIA RHEUMATICA
     Dosage: 50 MG, 1X/DAY
     Route: 048
     Dates: start: 2015
  4. LYRICA [Suspect]
     Active Substance: PREGABALIN
     Indication: NEUROPATHY PERIPHERAL
     Dosage: HALF OF THE DOSAGE
     Route: 048
     Dates: start: 20160123
  5. LYRICA [Suspect]
     Active Substance: PREGABALIN
     Dosage: BACK TO 100 MG IN THE MORNING AND 50 MG AT NIGHT
     Route: 048
  6. LYRICA [Suspect]
     Active Substance: PREGABALIN
     Dosage: 100 MG, 2X/DAY (100 MG, CAPSULES, ORALLY, ONE IN MORNING AND ONE AT NIGHT)
     Route: 048

REACTIONS (7)
  - Peripheral swelling [Not Recovered/Not Resolved]
  - Dyspnoea [Unknown]
  - Atrial fibrillation [Unknown]
  - Swelling [Not Recovered/Not Resolved]
  - Weight increased [Unknown]
  - Cardiac failure congestive [Unknown]
  - Intentional underdose [Unknown]

NARRATIVE: CASE EVENT DATE: 20160301
